FAERS Safety Report 4975114-8 (Version None)
Quarter: 2006Q2

REPORT INFORMATION
  Report Type: 
  Country: None (occurrence: None)
  Receive Date: 20060414
  Receipt Date: 20060414
  Transmission Date: 20061013
  Serious: No
  Sender: FDA-Public Use
  Company Number: None

PATIENT
  Age: 37 Year
  Sex: Female

DRUGS (1)
  1. HISTACOL TAB [Suspect]
     Indication: HYPERSENSITIVITY
     Dosage: ONE CAPSULE BEDTIME ORALLY
     Route: 048

REACTIONS (6)
  - ADVERSE DRUG REACTION [None]
  - DRY MOUTH [None]
  - HEMIPLEGIA [None]
  - MYDRIASIS [None]
  - OVERDOSE [None]
  - TACHYCARDIA [None]
